FAERS Safety Report 19768559 (Version 1)
Quarter: 2021Q3

REPORT INFORMATION
  Report Type: Spontaneous
  Country: US (occurrence: US)
  Receive Date: 20210826
  Receipt Date: 20210826
  Transmission Date: 20211014
  Serious: No
  Sender: FDA-Public Use
  Company Number: None

PATIENT
  Age: 70 Year
  Sex: Male
  Weight: 108 kg

DRUGS (1)
  1. TOCILIZUMAB (TOCILIZUMAB 20MG/ML INJ, SOLN , 4ML) [Suspect]
     Active Substance: TOCILIZUMAB
     Indication: UPPER RESPIRATORY TRACT INFECTION
     Dosage: ?          OTHER STRENGTH:20MG/ML, 4ML;?
     Route: 042
     Dates: start: 20210730, end: 20210730

REACTIONS (1)
  - Pneumonia [None]

NARRATIVE: CASE EVENT DATE: 20210730
